FAERS Safety Report 25751791 (Version 1)
Quarter: 2025Q3

REPORT INFORMATION
  Report Type: Spontaneous
  Country: US (occurrence: US)
  Receive Date: 20250902
  Receipt Date: 20250902
  Transmission Date: 20251021
  Serious: Yes (Other)
  Sender: TORRENT PHARMA INC.
  Company Number: US-TORRENT-00014496

PATIENT
  Age: 55 Year
  Sex: Female

DRUGS (1)
  1. LEVOFLOXACIN [Suspect]
     Active Substance: LEVOFLOXACIN
     Indication: Sinusitis
     Dosage: 500 MG/DAY FOR 10 DAYS EACH
     Route: 065

REACTIONS (17)
  - Fatigue [Unknown]
  - Myalgia [Unknown]
  - Tendon pain [Unknown]
  - Arthralgia [Unknown]
  - Muscular weakness [Unknown]
  - Sleep disorder [Unknown]
  - Anxiety [Unknown]
  - Affective disorder [Unknown]
  - Neuropathy peripheral [Unknown]
  - Pain [Unknown]
  - Tendon disorder [Unknown]
  - Confusional state [Unknown]
  - Amnesia [Unknown]
  - Bulbar palsy [Unknown]
  - Somatic dysfunction [Unknown]
  - Sensory disturbance [Unknown]
  - Job dissatisfaction [Unknown]
